FAERS Safety Report 7042112-2 (Version None)
Quarter: 2010Q4

REPORT INFORMATION
  Report Type: 
  Country: None (occurrence: None)
  Receive Date: 20101013
  Receipt Date: 20100623
  Transmission Date: 20110411
  Serious: No
  Sender: FDA-Public Use
  Company Number: US-ASTRAZENECA-2010SE29625

PATIENT
  Sex: Female

DRUGS (3)
  1. SYMBICORT [Suspect]
     Dosage: 160/4.5 MCG
     Route: 055
  2. SYMBICORT [Suspect]
     Dosage: 80/4.5 MCG
     Route: 055
  3. THEOPHYLLINE [Suspect]
     Route: 065

REACTIONS (1)
  - OEDEMA [None]
